FAERS Safety Report 8759701 (Version 1)
Quarter: 2012Q4

REPORT INFORMATION
  Report Type: 
  Country: CN (occurrence: CN)
  Receive Date: 20120829
  Receipt Date: 20120829
  Transmission Date: 20130627
  Serious: Yes (Other)
  Sender: FDA-Public Use
  Company Number: CN-ROCHE-1106115

PATIENT
  Age: 0 Year
  Sex: Male
  Weight: 3.1 kg

DRUGS (3)
  1. ROCEPHIN [Suspect]
     Indication: MENINGITIS NEONATAL
     Route: 041
     Dates: start: 20100823, end: 20100914
  2. PIPERACILLIN SODIUM/TAZOBACTAM [Suspect]
     Indication: MENINGITIS NEONATAL
     Route: 041
     Dates: start: 20100826, end: 20100923
  3. MEROPENEM [Suspect]
     Indication: MENINGITIS NEONATAL
     Route: 041
     Dates: start: 20100823, end: 20100923

REACTIONS (1)
  - Hepatic function abnormal [Recovered/Resolved]
